FAERS Safety Report 4608027-1 (Version None)
Quarter: 2005Q2

REPORT INFORMATION
  Report Type: 
  Country: None (occurrence: None)
  Receive Date: 20050303
  Receipt Date: 20041209
  Transmission Date: 20051028
  Serious: No
  Sender: FDA-Public Use
  Company Number: 211011

PATIENT
  Age: 12 Year
  Sex: Male

DRUGS (3)
  1. XOLAIR [Suspect]
     Indication: ASTHMA
     Dosage: 375 MG, QW2,
     Dates: start: 20041101
  2. LUVOX [Concomitant]
  3. TRILEPTAL [Concomitant]

REACTIONS (2)
  - MANIA [None]
  - OBSESSIVE-COMPULSIVE DISORDER [None]
